FAERS Safety Report 5542056-9 (Version None)
Quarter: 2007Q4

REPORT INFORMATION
  Report Type: 
  Country: None (occurrence: None)
  Receive Date: 20071210
  Receipt Date: 20071204
  Transmission Date: 20080405
  Serious: Yes (Life-Threatening, Hospitalization)
  Sender: FDA-Public Use
  Company Number: ES-BAYER-200717656GPV

PATIENT
  Age: 85 Year
  Sex: Male

DRUGS (2)
  1. ADIRO 300 MG/ASA [Suspect]
     Indication: CEREBROVASCULAR ACCIDENT PROPHYLAXIS
     Route: 048
     Dates: start: 20010101
  2. ESPIDIFEN 600 MG/IBUPROFEN [Suspect]
     Indication: ABDOMINAL PAIN
     Dosage: TOTAL DAILY DOSE: 1.8 G  UNIT DOSE: 600 MG
     Route: 048
     Dates: start: 20060101, end: 20071019

REACTIONS (1)
  - THROMBOCYTOPENIA [None]
